FAERS Safety Report 6355902-6 (Version None)
Quarter: 2009Q3

REPORT INFORMATION
  Report Type: 
  Country: None (occurrence: None)
  Receive Date: 20090910
  Receipt Date: 20090910
  Transmission Date: 20100115
  Serious: Yes (Life-Threatening)
  Sender: FDA-Public Use
  Company Number: None

PATIENT
  Sex: Female
  Weight: 65.5 kg

DRUGS (1)
  1. REGULAR INSULIN [Suspect]
     Indication: TYPE 1 DIABETES MELLITUS
     Dosage: DRIP TITRATED IV
     Dates: start: 20090612

REACTIONS (1)
  - BLOOD GLUCOSE DECREASED [None]
